FAERS Safety Report 5343946-2 (Version None)
Quarter: 2007Q2

REPORT INFORMATION
  Report Type: 
  Country: None (occurrence: None)
  Receive Date: 20070604
  Receipt Date: 20070528
  Transmission Date: 20071010
  Serious: Yes (Hospitalization)
  Sender: FDA-Public Use
  Company Number: FR-ASTRAZENECA-2007CG00828

PATIENT
  Age: 83 Year
  Sex: Female

DRUGS (7)
  1. ATACAND [Suspect]
     Route: 048
     Dates: end: 20070423
  2. IMOVANE [Concomitant]
     Route: 048
  3. INIPOMP [Concomitant]
     Route: 048
  4. AMIODARONE HCL [Concomitant]
     Route: 048
  5. CELIPROLOL [Concomitant]
     Route: 048
  6. KARDEGIC [Concomitant]
     Route: 048
  7. TAMOXIFEN [Concomitant]

REACTIONS (4)
  - APHASIA [None]
  - CLONUS [None]
  - HYPERTENSION [None]
  - HYPONATRAEMIA [None]
